FAERS Safety Report 18983994 (Version 1)
Quarter: 2021Q1

REPORT INFORMATION
  Report Type: Spontaneous
  Country: IL (occurrence: IL)
  Receive Date: 20210309
  Receipt Date: 20210309
  Transmission Date: 20210420
  Serious: Yes (Other)
  Sender: FDA-Public Use
  Company Number: IL-ROCHE-2778992

PATIENT
  Age: 54 Year
  Sex: Female

DRUGS (8)
  1. ALECTINIB. [Suspect]
     Active Substance: ALECTINIB
     Indication: METASTASES TO CENTRAL NERVOUS SYSTEM
     Route: 065
     Dates: start: 20181211
  2. DASATINIB. [Suspect]
     Active Substance: DASATINIB
     Indication: METASTASES TO CENTRAL NERVOUS SYSTEM
     Route: 065
  3. BRIGATINIB [Suspect]
     Active Substance: BRIGATINIB
     Indication: PRODUCT USED FOR UNKNOWN INDICATION
     Route: 065
  4. BOSUTINIB [Suspect]
     Active Substance: BOSUTINIB
     Indication: METASTASES TO CENTRAL NERVOUS SYSTEM
     Route: 065
  5. LORLATINIB [Suspect]
     Active Substance: LORLATINIB
     Indication: ADENOCARCINOMA
     Dosage: 6 MONTH  1 DAY
     Route: 048
  6. IMATINIB. [Suspect]
     Active Substance: IMATINIB MESYLATE
     Indication: METASTASES TO CENTRAL NERVOUS SYSTEM
     Route: 065
  7. NILOTINIB [Suspect]
     Active Substance: NILOTINIB
     Indication: METASTASES TO CENTRAL NERVOUS SYSTEM
     Route: 065
  8. LORLATINIB [Suspect]
     Active Substance: LORLATINIB
     Indication: METASTASES TO CENTRAL NERVOUS SYSTEM

REACTIONS (7)
  - Dyspnoea exertional [Unknown]
  - Rhinorrhoea [Unknown]
  - Pain in extremity [Unknown]
  - Cough [Unknown]
  - Night sweats [Unknown]
  - Hepatic enzyme increased [Unknown]
  - Iron deficiency anaemia [Unknown]
